FAERS Safety Report 7537453-6 (Version None)
Quarter: 2011Q2

REPORT INFORMATION
  Report Type: 
  Country: None (occurrence: None)
  Receive Date: 20110608
  Receipt Date: 20110608
  Transmission Date: 20111010
  Serious: No
  Sender: FDA-Public Use
  Company Number: None

PATIENT
  Sex: Male
  Weight: 88.4514 kg

DRUGS (1)
  1. TOPIRAMATE [Suspect]
     Indication: MIGRAINE
     Dosage: 1 TAB ONCE A DAY PO
     Route: 048
     Dates: start: 20110512, end: 20110607

REACTIONS (6)
  - ECONOMIC PROBLEM [None]
  - WEIGHT INCREASED [None]
  - HYPOAESTHESIA [None]
  - PRODUCT SUBSTITUTION ISSUE [None]
  - MIGRAINE [None]
  - PARAESTHESIA [None]
